FAERS Safety Report 9157893 (Version 2)
Quarter: 2013Q3

REPORT INFORMATION
  Report Type: Report from Study
  Country: US (occurrence: US)
  Receive Date: 20130312
  Receipt Date: 20130829
  Transmission Date: 20140515
  Serious: Yes (Hospitalization)
  Sender: FDA-Public Use
  Company Number: US-ELI_LILLY_AND_COMPANY-US201201009034

PATIENT
  Age: 71 Year
  Sex: Female

DRUGS (7)
  1. TERIPARATIDE [Suspect]
     Indication: OSTEOPOROSIS
     Dosage: 20 UG, QD
     Route: 065
     Dates: start: 201111
  2. TERIPARATIDE [Suspect]
     Indication: PELVIC FRACTURE
     Dosage: 20 UG, QD
  3. LYRICA [Concomitant]
     Indication: FIBROMYALGIA
  4. ANALGESICS [Concomitant]
     Indication: PAIN
  5. SYNTHROID [Concomitant]
  6. XANAX [Concomitant]
  7. LOTREL [Concomitant]

REACTIONS (15)
  - Impaired healing [Unknown]
  - Local swelling [Not Recovered/Not Resolved]
  - Swelling [Not Recovered/Not Resolved]
  - Abdominal distension [Not Recovered/Not Resolved]
  - Abdominal discomfort [Not Recovered/Not Resolved]
  - Weight increased [Unknown]
  - Influenza like illness [Unknown]
  - Malaise [Unknown]
  - Dyspnoea [Unknown]
  - Pain [Unknown]
  - Pain in extremity [Unknown]
  - Skin discolouration [Unknown]
  - Mobility decreased [Unknown]
  - Hypoaesthesia [Unknown]
  - Malaise [Unknown]
